FAERS Safety Report 10994513 (Version 2)
Quarter: 2015Q2

REPORT INFORMATION
  Report Type: Spontaneous
  Country: US (occurrence: US)
  Receive Date: 20150407
  Receipt Date: 20150623
  Transmission Date: 20150821
  Serious: No
  Sender: FDA-Public Use
  Company Number: US-009507513-1503USA013449

PATIENT
  Age: 21 Year
  Sex: Female
  Weight: 90.7 kg

DRUGS (2)
  1. NEXPLANON [Suspect]
     Active Substance: ETONOGESTREL
     Indication: CONTRACEPTION
     Dosage: ONE EVERY THREE YEARS
     Route: 059
     Dates: start: 20121120, end: 20150417
  2. NEXPLANON [Suspect]
     Active Substance: ETONOGESTREL
     Dosage: 1 EVERY THREE YEARS
     Route: 059
     Dates: start: 20150417

REACTIONS (3)
  - Metrorrhagia [Unknown]
  - Product quality issue [Unknown]
  - Device kink [Recovered/Resolved]

NARRATIVE: CASE EVENT DATE: 201406
